FAERS Safety Report 17325504 (Version 1)
Quarter: 2020Q1

REPORT INFORMATION
  Report Type: Spontaneous
  Country: US (occurrence: US)
  Receive Date: 20200127
  Receipt Date: 20200127
  Transmission Date: 20200409
  Serious: No
  Sender: FDA-Public Use
  Company Number: US-REGENERON PHARMACEUTICALS, INC.-2019-11264

PATIENT

DRUGS (3)
  1. EYLEA [Suspect]
     Active Substance: AFLIBERCEPT
     Dosage: EVERY 4 WEEKS IN BOTH EYES
     Route: 031
     Dates: start: 20181228, end: 20181228
  2. EYLEA [Suspect]
     Active Substance: AFLIBERCEPT
     Dosage: RIGHT EYE
     Route: 031
     Dates: start: 2017
  3. EYLEA [Suspect]
     Active Substance: AFLIBERCEPT
     Indication: MACULAR DEGENERATION
     Dosage: EVERY 10 OR 11 WEEKS IN THE LEFT EYE
     Route: 031
     Dates: start: 2014

REACTIONS (2)
  - Drug ineffective [Unknown]
  - Eye disorder [Unknown]
